FAERS Safety Report 4613541-9 (Version None)
Quarter: 2005Q1

REPORT INFORMATION
  Report Type: 
  Country: None (occurrence: None)
  Receive Date: 20050318
  Receipt Date: 20050318
  Transmission Date: 20050727
  Serious: Yes (Other)
  Sender: FDA-Public Use
  Company Number: None

PATIENT
  Age: 49 Year
  Sex: Male
  Weight: 80.3 kg

DRUGS (8)
  1. ROSIGLITAZONE [Suspect]
     Indication: DIABETES MELLITUS
     Dosage: 8 MG QD
     Dates: start: 20040701, end: 20041101
  2. CILASTAZOLE [Concomitant]
  3. GLYBURIDE [Concomitant]
  4. LISINOPRIL [Concomitant]
  5. OMEPRAZOLE [Concomitant]
  6. QUININE S04 [Concomitant]
  7. ... [Concomitant]
  8. SIMVA [Concomitant]

REACTIONS (1)
  - OEDEMA PERIPHERAL [None]
